FAERS Safety Report 9343981 (Version 2)
Quarter: 2013Q4

REPORT INFORMATION
  Report Type: Report from Study
  Country: FR (occurrence: FR)
  Receive Date: 20130612
  Receipt Date: 20131202
  Transmission Date: 20140711
  Serious: Yes (Death, Hospitalization)
  Sender: FDA-Public Use
  Company Number: PHHY2013FR059218

PATIENT
  Sex: Female

DRUGS (3)
  1. ICL670A [Suspect]
     Indication: IRON OVERLOAD
     Dosage: UNK, DAILY
     Route: 048
     Dates: start: 20070731, end: 20120125
  2. ICL670A [Suspect]
     Dosage: 500 MG, DAILY
     Route: 048
     Dates: start: 20120125
  3. ARANESP [Concomitant]
     Dosage: 300 UG, WEEKLY
     Dates: start: 201010

REACTIONS (2)
  - General physical health deterioration [Fatal]
  - Pyelonephritis [Recovered/Resolved with Sequelae]
